FAERS Safety Report 8060458-6 (Version None)
Quarter: 2012Q1

REPORT INFORMATION
  Report Type: 
  Country: None (occurrence: None)
  Receive Date: 20120120
  Receipt Date: 20120112
  Transmission Date: 20120608
  Serious: Yes (Other)
  Sender: FDA-Public Use
  Company Number: GB-GLAXOSMITHKLINE-B0775405A

PATIENT
  Age: 60 Year
  Sex: Female

DRUGS (2)
  1. MADOPAR [Suspect]
     Indication: PARKINSON'S DISEASE
     Route: 048
  2. REQUIP XL [Suspect]
     Indication: PARKINSON'S DISEASE
     Dosage: 18MG IN THE MORNING
     Route: 048

REACTIONS (3)
  - SOMNOLENCE [None]
  - NIGHTMARE [None]
  - HALLUCINATION [None]
